FAERS Safety Report 11138257 (Version 1)
Quarter: 2015Q2

REPORT INFORMATION
  Report Type: Spontaneous
  Country: BR (occurrence: BR)
  Receive Date: 20150526
  Receipt Date: 20150526
  Transmission Date: 20150821
  Serious: Yes (Hospitalization)
  Sender: FDA-Public Use
  Company Number: PHHY2015BR062727

PATIENT
  Sex: Male
  Weight: 90 kg

DRUGS (5)
  1. ATENOLOL. [Concomitant]
     Active Substance: ATENOLOL
     Dosage: 1 DF (1 TABLET OF 25 MG), QD (DAILY)
     Route: 048
  2. VALSARTAN. [Suspect]
     Active Substance: VALSARTAN
     Indication: PRODUCT USED FOR UNKNOWN INDICATION
     Route: 065
  3. ATENOLOL. [Concomitant]
     Active Substance: ATENOLOL
     Indication: HYPERTENSION
     Dosage: 2 DF (2 TABLETS OF 25 MG), QD (DAILY)
     Route: 048
  4. DIOVAN [Suspect]
     Active Substance: VALSARTAN
     Indication: HYPERTENSION
     Dosage: 1 DF (1 TABLET OF 320 MG), QD (IN THE MORNING)
     Route: 048
     Dates: end: 20150410
  5. INSULIN [Concomitant]
     Active Substance: INSULIN NOS
     Indication: DIABETES MELLITUS
     Dosage: UNK
     Route: 005
     Dates: start: 2010

REACTIONS (2)
  - Blood creatinine increased [Recovered/Resolved]
  - Erysipelas [Recovered/Resolved]
